FAERS Safety Report 4782768-8 (Version None)
Quarter: 2005Q3

REPORT INFORMATION
  Report Type: 
  Country: None (occurrence: None)
  Receive Date: 20050929
  Receipt Date: 20050919
  Transmission Date: 20060218
  Serious: Yes (Other)
  Sender: FDA-Public Use
  Company Number: US-NOVOPROD-247086

PATIENT
  Sex: Female

DRUGS (4)
  1. NOVOSEVEN [Suspect]
     Indication: FACTOR VII DEFICIENCY
     Dosage: UNKNOWN
     Route: 042
     Dates: start: 20040101
  2. DILANTIN [Concomitant]
     Indication: EPILEPSY
     Dosage: 200 MG, QD
     Route: 048
  3. KEPPRA [Concomitant]
     Indication: EPILEPSY
     Dosage: 1500 MG, QD
     Route: 048
  4. TOPROL-XL [Concomitant]
     Indication: HEART RATE IRREGULAR
     Dosage: UNK, QD
     Route: 048

REACTIONS (2)
  - FALL [None]
  - HAEMANGIOMA [None]
